FAERS Safety Report 7412381-5 (Version None)
Quarter: 2011Q2

REPORT INFORMATION
  Report Type: 
  Country: None (occurrence: None)
  Receive Date: 20110413
  Receipt Date: 20110412
  Transmission Date: 20111010
  Serious: Yes (Hospitalization)
  Sender: FDA-Public Use
  Company Number: IT-PFIZER INC-2011079982

PATIENT
  Age: 72 Year
  Sex: Male

DRUGS (8)
  1. ACTOS [Concomitant]
     Dosage: 15 MG
     Route: 048
  2. ASPIRIN [Concomitant]
     Dosage: 100 MG
     Route: 048
  3. VIAGRA [Suspect]
     Indication: ERECTILE DYSFUNCTION
     Dosage: 25 MG, TOTAL DOSE
     Route: 048
     Dates: start: 20110402, end: 20110402
  4. GLUCOPHAGE [Concomitant]
     Dosage: 3000 MG
     Route: 048
  5. PROSTIDE [Concomitant]
     Dosage: 5 MG
     Route: 048
  6. XATRAL [Concomitant]
     Dosage: 2.5 MG
     Route: 048
  7. SIMVASTATIN [Concomitant]
     Dosage: 20 MG
     Route: 048
  8. OLMESARTAN MEDOXOMIL [Concomitant]
     Dosage: 10 MG
     Route: 048

REACTIONS (2)
  - LOSS OF CONSCIOUSNESS [None]
  - PRESYNCOPE [None]
